FAERS Safety Report 12228095 (Version 1)
Quarter: 2016Q2

REPORT INFORMATION
  Report Type: Spontaneous
  Country: TN (occurrence: TN)
  Receive Date: 20160401
  Receipt Date: 20160401
  Transmission Date: 20160815
  Serious: Yes (Other)
  Sender: FDA-Public Use
  Company Number: TN-ACCORD-039106

PATIENT
  Age: 57 Year
  Sex: Male

DRUGS (1)
  1. METHOTREXATE [Suspect]
     Active Substance: METHOTREXATE
     Indication: MYCOSIS FUNGOIDES STAGE I
     Dosage: INITIALLY STARTED WITH 30 MG PER WEEK

REACTIONS (2)
  - Toxic epidermal necrolysis [Recovered/Resolved]
  - Gastric disorder [Unknown]
